FAERS Safety Report 13274958 (Version 1)
Quarter: 2017Q1

REPORT INFORMATION
  Report Type: Spontaneous
  Country: CH (occurrence: CH)
  Receive Date: 20170227
  Receipt Date: 20170227
  Transmission Date: 20170428
  Serious: Yes (Hospitalization, Other)
  Sender: FDA-Public Use
  Company Number: CH-ELI_LILLY_AND_COMPANY-CH201702007646

PATIENT
  Age: 56 Year
  Sex: Male

DRUGS (10)
  1. METHADONE [Interacting]
     Active Substance: METHADONE HYDROCHLORIDE
     Indication: SUBSTANCE DEPENDENCE
     Dosage: 50 MG, QD
     Route: 048
  2. DAFALGAN [Concomitant]
     Active Substance: ACETAMINOPHEN
     Indication: PAIN MANAGEMENT
     Dosage: 1000 MG, QID
     Route: 048
  3. IRFEN [Concomitant]
     Active Substance: IBUPROFEN
     Indication: PAIN MANAGEMENT
     Dosage: 600 MG, TID
     Route: 048
  4. CYMBALTA [Suspect]
     Active Substance: DULOXETINE HYDROCHLORIDE
     Indication: PRODUCT USED FOR UNKNOWN INDICATION
     Dosage: 60 MG, QD
     Route: 048
  5. GILOTRIF [Interacting]
     Active Substance: AFATINIB
     Indication: LUNG ADENOCARCINOMA METASTATIC
     Dosage: 40 MG, QD
     Route: 048
     Dates: start: 20161209, end: 20170123
  6. BENERVA [Concomitant]
     Active Substance: THIAMINE
     Indication: VITAMIN B1
     Dosage: 300 MG, QD
     Route: 048
  7. BECOZYM                            /00228301/ [Concomitant]
     Active Substance: CALCIUM PANTOTHENATE\NIACINAMIDE\PYRIDOXINE HYDROCHLORIDE\RIBOFLAVIN\THIAMINE MONONITRATE
     Indication: HYPOVITAMINOSIS
     Dosage: 1 DF, QD
     Route: 048
  8. LEVETIRACETAM. [Concomitant]
     Active Substance: LEVETIRACETAM
     Indication: EPILEPSY
     Dosage: 1000 MG, BID
     Route: 048
  9. LIORESAL [Concomitant]
     Active Substance: BACLOFEN
     Dosage: 120 MG, UNKNOWN
     Route: 048
  10. BIOFLORIN                          /00079701/ [Concomitant]
     Indication: PROBIOTIC THERAPY
     Dosage: 1 DF, TID
     Route: 048

REACTIONS (8)
  - Pericardial effusion [Unknown]
  - Pleural effusion [Unknown]
  - Ascites [Unknown]
  - Interstitial lung disease [Recovering/Resolving]
  - Cardiac tamponade [Unknown]
  - Respiratory failure [Recovering/Resolving]
  - Fatigue [Unknown]
  - Dizziness [Unknown]

NARRATIVE: CASE EVENT DATE: 20170120
